FAERS Safety Report 5371331-6 (Version None)
Quarter: 2007Q2

REPORT INFORMATION
  Report Type: 
  Country: None (occurrence: None)
  Receive Date: 20070622
  Receipt Date: 20070611
  Transmission Date: 20071010
  Serious: Yes (Other)
  Sender: FDA-Public Use
  Company Number: 157451ISR

PATIENT
  Age: 27 Year
  Sex: Female

DRUGS (2)
  1. LAMOTRIGINE [Suspect]
     Indication: EPILEPSY
     Dosage: 100 MG (100 MG, 1 IN 1 D) ORAL
     Route: 048
     Dates: start: 20051201
  2. DESOGESTREL [Suspect]
     Indication: CONTRACEPTION
     Dosage: ?? (75 MG) ORAL
     Route: 048
     Dates: start: 20060515, end: 20060623

REACTIONS (3)
  - DRUG INEFFECTIVE [None]
  - DRUG INTERACTION [None]
  - PREGNANCY ON ORAL CONTRACEPTIVE [None]
